FAERS Safety Report 24108021 (Version 3)
Quarter: 2024Q4

REPORT INFORMATION
  Report Type: Spontaneous
  Country: FR (occurrence: FR)
  Receive Date: 20240718
  Receipt Date: 20241003
  Transmission Date: 20250115
  Serious: Yes (Other)
  Sender: UCB
  Company Number: FR-UCBSA-2024035373

PATIENT
  Age: 20 Year
  Sex: Female
  Weight: 44 kg

DRUGS (7)
  1. FINTEPLA [Suspect]
     Active Substance: FENFLURAMINE
     Indication: Severe myoclonic epilepsy of infancy
     Dosage: 8.8 MILLIGRAM, ONCE DAILY (QD)
     Route: 065
     Dates: start: 20230803
  2. STIRIPENTOL [Concomitant]
     Active Substance: STIRIPENTOL
     Indication: Product used for unknown indication
     Dosage: 700 UNK, 2X/DAY (BID)
  3. CLOBAZAM [Concomitant]
     Active Substance: CLOBAZAM
     Indication: Product used for unknown indication
     Dosage: 10-0-15
  4. VALPROATE [Concomitant]
     Active Substance: VALPROIC ACID
     Indication: Product used for unknown indication
     Dosage: 200-0-350
  5. CANNABIDIOL [Concomitant]
     Active Substance: CANNABIDIOL
     Indication: Product used for unknown indication
     Dosage: 300 UNK, 2X/DAY (BID)
  6. TOPIRAMATE [Concomitant]
     Active Substance: TOPIRAMATE
     Indication: Product used for unknown indication
     Dosage: 15 UNK, ONCE DAILY (QD)
  7. ALCOHOL [Concomitant]
     Active Substance: ALCOHOL

REACTIONS (1)
  - Mitral valve incompetence [Unknown]
